FAERS Safety Report 8184780-8 (Version None)
Quarter: 2012Q1

REPORT INFORMATION
  Report Type: 
  Country: None (occurrence: None)
  Receive Date: 20120305
  Receipt Date: 20120305
  Transmission Date: 20120608
  Serious: Yes (Life-Threatening)
  Sender: FDA-Public Use
  Company Number: None

PATIENT
  Age: 40 Year
  Sex: Female
  Weight: 59.874 kg

DRUGS (1)
  1. CIPROFLOXACIN [Suspect]
     Indication: CYSTITIS
     Route: 048

REACTIONS (7)
  - PALPITATIONS [None]
  - TENDON DISORDER [None]
  - UPPER RESPIRATORY TRACT INFECTION [None]
  - KIDNEY INFECTION [None]
  - MYALGIA [None]
  - DIZZINESS [None]
  - NAUSEA [None]
